FAERS Safety Report 7418019-5 (Version None)
Quarter: 2011Q2

REPORT INFORMATION
  Report Type: 
  Country: None (occurrence: None)
  Receive Date: 20110415
  Receipt Date: 20110405
  Transmission Date: 20111010
  Serious: Yes (Death)
  Sender: FDA-Public Use
  Company Number: US-ROCHE-769102

PATIENT
  Sex: Male

DRUGS (6)
  1. CARBOPLATIN [Suspect]
     Indication: NON-SMALL CELL LUNG CANCER
     Dosage: 680 MG, Q3W
     Route: 042
     Dates: start: 20070827, end: 20101203
  2. PACLITAXEL [Suspect]
     Dosage: 129.06 MG, Q3W
     Route: 042
     Dates: start: 20070827, end: 20101203
  3. CARBOPLATIN [Suspect]
     Dosage: 680 MG, Q3W
     Route: 042
     Dates: start: 20070827, end: 20101203
  4. BEVACIZUMAB [Suspect]
     Dosage: 7.5 MG/KG, Q3W
     Route: 042
     Dates: start: 20070827, end: 20101203
  5. PACLITAXEL [Suspect]
     Indication: NON-SMALL CELL LUNG CANCER
     Dosage: 129.06 MG, Q3W
     Route: 042
     Dates: start: 20070827, end: 20101203
  6. BEVACIZUMAB [Suspect]
     Dosage: 7.5 MG/KG, Q3W
     Route: 042
     Dates: start: 20070827, end: 20101203

REACTIONS (1)
  - RESPIRATORY FAILURE [None]
